FAERS Safety Report 17210152 (Version 1)
Quarter: 2019Q4

REPORT INFORMATION
  Report Type: Spontaneous
  Country: AU (occurrence: AU)
  Receive Date: 20191227
  Receipt Date: 20191227
  Transmission Date: 20200122
  Serious: Yes (Life-Threatening, Hospitalization)
  Sender: FDA-Public Use
  Company Number: AU-MYLANLABS-2019M1131305

PATIENT
  Age: 38 Year
  Sex: Male

DRUGS (3)
  1. ROCURONIUM [Concomitant]
     Active Substance: ROCURONIUM BROMIDE
     Indication: INDUCTION OF ANAESTHESIA
     Route: 065
  2. FENTANYL. [Suspect]
     Active Substance: FENTANYL
     Indication: INDUCTION OF ANAESTHESIA
     Route: 065
  3. KETAMINE [Concomitant]
     Active Substance: KETAMINE
     Indication: INDUCTION OF ANAESTHESIA
     Route: 065

REACTIONS (4)
  - Vagus nerve disorder [Recovered/Resolved]
  - Pulseless electrical activity [Recovered/Resolved]
  - Autonomic nervous system imbalance [Recovered/Resolved]
  - Abdominal distension [Recovered/Resolved]
